FAERS Safety Report 7529515-4 (Version None)
Quarter: 2011Q2

REPORT INFORMATION
  Report Type: 
  Country: None (occurrence: None)
  Receive Date: 20110607
  Receipt Date: 20050728
  Transmission Date: 20111010
  Serious: Yes (Death, Hospitalization)
  Sender: FDA-Public Use
  Company Number: PHHO2005CA08644

PATIENT
  Sex: Male

DRUGS (1)
  1. CLOZARIL [Suspect]
     Route: 048
     Dates: start: 20030905

REACTIONS (5)
  - METASTASES TO LIVER [None]
  - HYPERCALCAEMIA [None]
  - METASTASES TO LYMPH NODES [None]
  - METASTASES TO SPINE [None]
  - LUNG NEOPLASM MALIGNANT [None]
